FAERS Safety Report 4739133-9 (Version None)
Quarter: 2005Q3

REPORT INFORMATION
  Report Type: 
  Country: None (occurrence: None)
  Receive Date: 20050810
  Receipt Date: 20050421
  Transmission Date: 20060218
  Serious: No
  Sender: FDA-Public Use
  Company Number: US-GLAXOSMITHKLINE-A0555223A

PATIENT
  Sex: Female

DRUGS (4)
  1. PAXIL CR [Suspect]
     Dosage: 10MG PER DAY
     Route: 048
  2. SINGULAIR [Concomitant]
  3. ADVAIR DISKUS 100/50 [Concomitant]
  4. ALLEGRA [Concomitant]

REACTIONS (1)
  - ANXIETY [None]
